FAERS Safety Report 14156958 (Version 1)
Quarter: 2017Q4

REPORT INFORMATION
  Report Type: Spontaneous
  Country: US (occurrence: None)
  Receive Date: 20171102
  Receipt Date: 20171102
  Transmission Date: 20180321
  Serious: Yes (Hospitalization)
  Sender: FDA-Public Use
  Company Number: None

PATIENT
  Age: 66 Year
  Sex: Female

DRUGS (4)
  1. MULTIVITAMIN [Concomitant]
     Active Substance: VITAMINS
  2. FORTEO [Suspect]
     Active Substance: TERIPARATIDE
     Indication: OSTEOPOROSIS
     Route: 058
     Dates: start: 20160607
  3. ADVIL [Concomitant]
     Active Substance: IBUPROFEN
  4. KRILL OIL [Concomitant]
     Active Substance: DIETARY SUPPLEMENT

REACTIONS (5)
  - Renal artery stent placement [None]
  - Product storage error [None]
  - Renal stone removal [None]
  - Drug dose omission [None]
  - Surgical failure [None]

NARRATIVE: CASE EVENT DATE: 20171025
